FAERS Safety Report 15866852 (Version 1)
Quarter: 2019Q1

REPORT INFORMATION
  Report Type: Spontaneous
  Country: US (occurrence: US)
  Receive Date: 20190124
  Receipt Date: 20190124
  Transmission Date: 20190417
  Serious: No
  Sender: FDA-Public Use
  Company Number: None

PATIENT
  Age: 19 Year
  Sex: Male
  Weight: 63 kg

DRUGS (7)
  1. FISH OIL [Concomitant]
     Active Substance: FISH OIL
  2. VITAMIN B12 [Concomitant]
     Active Substance: CYANOCOBALAMIN
  3. VITAMIN D3 [Concomitant]
     Active Substance: CHOLECALCIFEROL
  4. DESVENLAFAXINE. [Concomitant]
     Active Substance: DESVENLAFAXINE
  5. FOLIC ACID. [Concomitant]
     Active Substance: FOLIC ACID
  6. BUPROPION HCL XL 300 MG TABLET [Suspect]
     Active Substance: BUPROPION HYDROCHLORIDE
     Indication: MAJOR DEPRESSION
     Dosage: ?          QUANTITY:30 TABLET(S);?
     Route: 048
     Dates: start: 20190119
  7. BUPROPION. [Concomitant]
     Active Substance: BUPROPION

REACTIONS (5)
  - Dissociation [None]
  - Hallucination, auditory [None]
  - Dizziness [None]
  - Depersonalisation/derealisation disorder [None]
  - Head discomfort [None]

NARRATIVE: CASE EVENT DATE: 20190119
